FAERS Safety Report 4295173-8 (Version None)
Quarter: 2004Q1

REPORT INFORMATION
  Report Type: 
  Country: None (occurrence: None)
  Receive Date: 20040211
  Receipt Date: 20040128
  Transmission Date: 20041129
  Serious: Yes (Death, Hospitalization)
  Sender: FDA-Public Use
  Company Number: BRO-006656

PATIENT
  Age: 60 Year
  Sex: Male

DRUGS (1)
  1. IOPAMIDOL-300 [Suspect]
     Dosage: 100 ML IV
     Route: 042
     Dates: start: 20030901, end: 20030901

REACTIONS (24)
  - ALANINE AMINOTRANSFERASE INCREASED [None]
  - ANAEMIA [None]
  - ASPARTATE AMINOTRANSFERASE INCREASED [None]
  - BLOOD CREATINE PHOSPHOKINASE INCREASED [None]
  - BLOOD PRESSURE DECREASED [None]
  - CARDIO-RESPIRATORY ARREST [None]
  - CHEYNE-STOKES RESPIRATION [None]
  - CHILLS [None]
  - COMA [None]
  - COMPUTERISED TOMOGRAM ABNORMAL [None]
  - DEPRESSED LEVEL OF CONSCIOUSNESS [None]
  - DISORIENTATION [None]
  - EXCITABILITY [None]
  - FEELING ABNORMAL [None]
  - GAIT DISTURBANCE [None]
  - HEADACHE [None]
  - HEART RATE INCREASED [None]
  - HYPERGLYCAEMIA [None]
  - LIVER DISORDER [None]
  - OXYGEN SATURATION DECREASED [None]
  - PYREXIA [None]
  - RENAL DISORDER [None]
  - RESTLESSNESS [None]
  - STATUS EPILEPTICUS [None]
